FAERS Safety Report 10997964 (Version 1)
Quarter: 2015Q2

REPORT INFORMATION
  Report Type: Spontaneous
  Country: US (occurrence: US)
  Receive Date: 20150408
  Receipt Date: 20150408
  Transmission Date: 20150821
  Serious: No
  Sender: FDA-Public Use
  Company Number: US-BANPHARM-20153365

PATIENT
  Age: 60 Year
  Sex: Female

DRUGS (3)
  1. ALEVE [Suspect]
     Active Substance: NAPROXEN SODIUM
     Indication: HEADACHE
     Dosage: 2 DF, PRN,
     Route: 048
  2. HYDROCHLOROTHIAZIDE. [Concomitant]
     Active Substance: HYDROCHLOROTHIAZIDE
  3. ONE A DAY WOMEN [Concomitant]

REACTIONS (8)
  - Aphthous stomatitis [Not Recovered/Not Resolved]
  - Chapped lips [Not Recovered/Not Resolved]
  - Chapped lips [Not Recovered/Not Resolved]
  - Incorrect dose administered [Unknown]
  - Lip swelling [Not Recovered/Not Resolved]
  - Cheilitis [Recovered/Resolved]
  - Gingival disorder [Not Recovered/Not Resolved]
  - Hypoaesthesia oral [Not Recovered/Not Resolved]

NARRATIVE: CASE EVENT DATE: 20150107
